FAERS Safety Report 8757644 (Version 3)
Quarter: 2012Q4

REPORT INFORMATION
  Report Type: Report from Study
  Country: US (occurrence: US)
  Receive Date: 20120828
  Receipt Date: 20121207
  Transmission Date: 20130627
  Serious: Yes (Hospitalization)
  Sender: FDA-Public Use
  Company Number: US-ABBOTT-12P-163-0971244-00

PATIENT
  Sex: Female
  Weight: 61.74 kg

DRUGS (1)
  1. HUMIRA [Suspect]
     Indication: RHEUMATOID ARTHRITIS
     Route: 058
     Dates: start: 20120523

REACTIONS (4)
  - Colitis ischaemic [Recovering/Resolving]
  - Hiatus hernia [Unknown]
  - Glaucoma [Unknown]
  - Diverticulum [Recovering/Resolving]
